FAERS Safety Report 9146647 (Version 1)
Quarter: 2013Q1

REPORT INFORMATION
  Report Type: Spontaneous
  Country: US (occurrence: None)
  Receive Date: 20130207
  Receipt Date: 20130207
  Transmission Date: 20140127
  Serious: Yes (Death, Hospitalization)
  Sender: FDA-Public Use
  Company Number: QSC-2013-0021

PATIENT
  Sex: Male

DRUGS (2)
  1. H.P. ACTHAR GEL (ADRENOCORTICOTROPIC HORMONE) GEL FOR INJECTION, 80U/ML [Suspect]
     Indication: DERMATOMYOSITIS
     Dosage: 80 UNITS,  BIW,  SUBCUTANEOUS?01/--/2013  TO  UNK
     Route: 058
     Dates: start: 201301
  2. PREDNISONE (PREDNISONE) [Suspect]
     Dosage: UNK

REACTIONS (3)
  - Bacterial sepsis [None]
  - Lung infection [None]
  - Pneumonia [None]
